FAERS Safety Report 5383189-X (Version None)
Quarter: 2007Q3

REPORT INFORMATION
  Report Type: 
  Country: None (occurrence: None)
  Receive Date: 20070710
  Receipt Date: 20070628
  Transmission Date: 20080115
  Serious: Yes (Death, Life-Threatening, Hospitalization)
  Sender: FDA-Public Use
  Company Number: HQWYE561005JUL06

PATIENT
  Sex: Female

DRUGS (2)
  1. PANTOZOL [Suspect]
     Indication: GASTRIC DISORDER
     Route: 048
     Dates: start: 20051101, end: 20060201
  2. PANTOZOL [Suspect]
     Indication: GASTROOESOPHAGEAL REFLUX DISEASE

REACTIONS (2)
  - HEPATIC FAILURE [None]
  - HEPATITIS [None]
